FAERS Safety Report 7645976-4 (Version None)
Quarter: 2011Q3

REPORT INFORMATION
  Report Type: 
  Country: None (occurrence: None)
  Receive Date: 20110729
  Receipt Date: 20110720
  Transmission Date: 20111222
  Serious: Yes (Other)
  Sender: FDA-Public Use
  Company Number: IT-ASTRAZENECA-2011SE39921

PATIENT
  Age: 17052 Day
  Sex: Male

DRUGS (10)
  1. PRILOSEC [Suspect]
     Indication: PROPHYLAXIS AGAINST GASTROINTESTINAL ULCER
     Route: 048
     Dates: start: 20110514, end: 20110606
  2. LEVOFLOXACIN [Suspect]
     Indication: FEBRILE NEUTROPENIA
     Route: 042
     Dates: start: 20110526, end: 20110531
  3. ZYVOX [Suspect]
     Indication: FEBRILE NEUTROPENIA
     Route: 042
     Dates: start: 20110514, end: 20110606
  4. VFEND [Concomitant]
     Route: 042
     Dates: start: 20110514, end: 20110610
  5. LEVOFLOXACIN [Suspect]
     Route: 042
     Dates: start: 20110602, end: 20110608
  6. ZOVIRAX [Suspect]
     Indication: FEBRILE NEUTROPENIA
     Route: 042
     Dates: start: 20110514, end: 20110606
  7. PIPERACILLIN AND TAZOBACTAM [Concomitant]
     Dosage: 4 G PIPERACILLIN SODIUM +  SODIUM TAZOBACTAM 0.500 G
     Route: 042
     Dates: start: 20110607
  8. MERREM [Suspect]
     Indication: FEBRILE NEUTROPENIA
     Route: 042
     Dates: start: 20110523, end: 20110606
  9. ZITHROMAX [Suspect]
     Indication: FEBRILE NEUTROPENIA
     Route: 042
     Dates: start: 20110531, end: 20110531
  10. PIPERACILLIN AND TAZOBACTAM [Concomitant]
     Indication: FEBRILE NEUTROPENIA
     Dosage: 4 G PIPERACILLIN SODIUM +  SODIUM TAZOBACTAM 0.500 G, 13.5 G DAILY DOSAGE
     Route: 042
     Dates: start: 20110514, end: 20110523

REACTIONS (2)
  - RASH GENERALISED [None]
  - SKIN EXFOLIATION [None]
